FAERS Safety Report 5076374-8 (Version None)
Quarter: 2006Q3

REPORT INFORMATION
  Report Type: 
  Country: None (occurrence: None)
  Receive Date: 20060807
  Receipt Date: 20060727
  Transmission Date: 20061208
  Serious: Yes (Disabling)
  Sender: FDA-Public Use
  Company Number: 2006-143464-NL

PATIENT
  Age: 70 Year
  Sex: Male

DRUGS (10)
  1. DANAPAROID SODIUM [Suspect]
     Indication: DISSEMINATED INTRAVASCULAR COAGULATION
     Route: 041
     Dates: start: 20060311, end: 20060314
  2. CEFPIROME SULFATE [Concomitant]
  3. ISEPAMICIN SULFATE [Concomitant]
  4. MINOPHAGEN C [Concomitant]
  5. GLUTATHIONE [Concomitant]
  6. MIDAZOLAM HYDROCHLORIDE [Concomitant]
  7. VECURONIUM BROMIDE [Concomitant]
  8. DOPAMINE HCL [Concomitant]
  9. VERAPAMIL HYDROCHLORIDE [Concomitant]
  10. GABEXATE MESILATE [Concomitant]

REACTIONS (5)
  - CONDITION AGGRAVATED [None]
  - DISEASE PROGRESSION [None]
  - HAEMORRHAGIC DIATHESIS [None]
  - HEPATIC ISCHAEMIA [None]
  - LIVER DISORDER [None]
